FAERS Safety Report 12651232 (Version 4)
Quarter: 2016Q4

REPORT INFORMATION
  Report Type: Spontaneous
  Country: US (occurrence: US)
  Receive Date: 20160815
  Receipt Date: 20161005
  Transmission Date: 20170207
  Serious: Yes (Other)
  Sender: FDA-Public Use
  Company Number: US-RECKITT BENCKISER HEALTHCARE INT LIMITED-RB-89133-2016

PATIENT
  Age: 18 Year
  Sex: Male
  Weight: 63.5 kg

DRUGS (2)
  1. MUCINEX DM MAXIMUM STRENGTH [Suspect]
     Active Substance: DEXTROMETHORPHAN HYDROBROMIDE\GUAIFENESIN
     Dosage: 1200 MG, SINGLE
     Route: 065
     Dates: start: 20160601, end: 20160601
  2. MUCINEX DM MAXIMUM STRENGTH [Suspect]
     Active Substance: DEXTROMETHORPHAN HYDROBROMIDE\GUAIFENESIN
     Indication: RESPIRATORY TRACT CONGESTION
     Dosage: TAKEN AS DIRECTED (1 IN THE MORNING AND 1 IN THE NIGHT BEFORE BED)
     Route: 065
     Dates: start: 20160531, end: 20160531

REACTIONS (5)
  - Urinary retention [Recovered/Resolved]
  - Pain [Recovered/Resolved]
  - Micturition urgency [Recovered/Resolved]
  - Urethral stenosis [Recovered/Resolved]
  - Discomfort [Recovered/Resolved]

NARRATIVE: CASE EVENT DATE: 20160601
